FAERS Safety Report 12714589 (Version 2)
Quarter: 2016Q3

REPORT INFORMATION
  Report Type: Other
  Country: US (occurrence: US)
  Receive Date: 20160905
  Receipt Date: 20160926
  Transmission Date: 20161109
  Serious: No
  Sender: FDA-Public Use
  Company Number: US-UNITED THERAPEUTICS-UNT-2016-013306

PATIENT
  Age: 55 Year
  Sex: Male
  Weight: 98.41 kg

DRUGS (2)
  1. REMODULIN [Suspect]
     Active Substance: TREPROSTINIL
     Dosage: 0.011 ?G/KG, CONTINUING
     Route: 041
  2. REMODULIN [Suspect]
     Active Substance: TREPROSTINIL
     Indication: PULMONARY ARTERIAL HYPERTENSION
     Dosage: 0.008 ?G/KG, CONTINUING
     Route: 041
     Dates: start: 20160812

REACTIONS (8)
  - Pain in extremity [Not Recovered/Not Resolved]
  - Oedema [Recovering/Resolving]
  - Neuralgia [Not Recovered/Not Resolved]
  - Back pain [Unknown]
  - Diarrhoea [Unknown]
  - Weight decreased [Recovering/Resolving]
  - Oxygen saturation decreased [Unknown]
  - Dyspnoea [Not Recovered/Not Resolved]

NARRATIVE: CASE EVENT DATE: 201608
